FAERS Safety Report 9585853 (Version 1)
Quarter: 2013Q4

REPORT INFORMATION
  Report Type: Spontaneous
  Country: IL (occurrence: None)
  Receive Date: 20131001
  Receipt Date: 20131001
  Transmission Date: 20140711
  Serious: Yes (Life-Threatening)
  Sender: FDA-Public Use
  Company Number: FK201304402

PATIENT
  Age: 1 Week
  Sex: Female

DRUGS (2)
  1. CARBOPLATIN [Suspect]
     Indication: HEPATOBLASTOMA
     Dosage: 250 MG/M2, 1 CYCLE
  2. ETOPOSIDE [Suspect]
     Indication: HEPATOBLASTOMA
     Dosage: 75 MG/M2, 1 CYCLE

REACTIONS (4)
  - Febrile neutropenia [None]
  - Sepsis [None]
  - Metabolic acidosis [None]
  - Pneumonia [None]
